FAERS Safety Report 5430745-6 (Version None)
Quarter: 2007Q3

REPORT INFORMATION
  Report Type: 
  Country: None (occurrence: None)
  Receive Date: 20070830
  Receipt Date: 20061107
  Transmission Date: 20080115
  Serious: Yes (Other)
  Sender: FDA-Public Use
  Company Number: A0626585A

PATIENT
  Age: 40 Year
  Sex: Female

DRUGS (3)
  1. WELLBUTRIN XL [Suspect]
     Dosage: 300MG PER DAY
     Route: 048
     Dates: start: 20060301, end: 20061024
  2. MINOCIN [Concomitant]
  3. ALEVE [Concomitant]

REACTIONS (2)
  - HEPATIC ENZYME INCREASED [None]
  - VISION BLURRED [None]
